FAERS Safety Report 20562515 (Version 1)
Quarter: 2022Q1

REPORT INFORMATION
  Report Type: Spontaneous
  Country: ES (occurrence: ES)
  Receive Date: 20220307
  Receipt Date: 20220307
  Transmission Date: 20220423
  Serious: Yes (Hospitalization)
  Sender: FDA-Public Use
  Company Number: ES-NOVARTISPH-NVSC2022ES048982

PATIENT
  Age: 38 Year
  Sex: Male

DRUGS (2)
  1. LAMOTRIGINE [Suspect]
     Active Substance: LAMOTRIGINE
     Indication: Depressive symptom
     Dosage: TITRATED UP TO 200 MG, QD
     Route: 065
  2. ASENAPINE [Concomitant]
     Active Substance: ASENAPINE
     Indication: Psychotic disorder
     Dosage: 5 MG, QD
     Route: 065

REACTIONS (2)
  - Mania [Recovered/Resolved]
  - Bipolar disorder [Recovered/Resolved]
